FAERS Safety Report 13783386 (Version 3)
Quarter: 2017Q3

REPORT INFORMATION
  Report Type: Report from Study
  Country: US (occurrence: US)
  Receive Date: 20170724
  Receipt Date: 20170811
  Transmission Date: 20171127
  Serious: Yes (Death)
  Sender: FDA-Public Use
  Company Number: US-PFIZER INC-2017314701

PATIENT
  Age: 49 Year
  Sex: Female
  Weight: 69.84 kg

DRUGS (1)
  1. SUNITINIB MALATE. [Suspect]
     Active Substance: SUNITINIB MALATE
     Dosage: 50 MG, DAILY, CYCLIC
     Route: 048

REACTIONS (1)
  - Neoplasm progression [Fatal]
